FAERS Safety Report 14039461 (Version 1)
Quarter: 2017Q4

REPORT INFORMATION
  Report Type: Spontaneous
  Country: JP (occurrence: JP)
  Receive Date: 20171004
  Receipt Date: 20171004
  Transmission Date: 20180321
  Serious: Yes (Other)
  Sender: FDA-Public Use
  Company Number: JP-BAYER-2017-156219

PATIENT
  Sex: Female

DRUGS (1)
  1. STIVARGA [Suspect]
     Active Substance: REGORAFENIB
     Indication: COLON CANCER
     Dosage: 120MG DAILY, 3 WEEKS ON FOLLOWED BY 1WEEK OFF
     Route: 048
     Dates: start: 20170509, end: 201708

REACTIONS (1)
  - Colon cancer [Not Recovered/Not Resolved]
